FAERS Safety Report 7075530-7 (Version None)
Quarter: 2010Q4

REPORT INFORMATION
  Report Type: 
  Country: None (occurrence: None)
  Receive Date: 20101030
  Receipt Date: 20100927
  Transmission Date: 20110411
  Serious: No
  Sender: FDA-Public Use
  Company Number: US-WYE-H17822310

PATIENT
  Sex: Female

DRUGS (2)
  1. PRISTIQ [Suspect]
     Dosage: SLOW TAPER OFF THE MEDICATION SINCE LAST APRIL
     Dates: end: 20100921
  2. PROZAC [Concomitant]

REACTIONS (7)
  - DIARRHOEA [None]
  - DRUG WITHDRAWAL SYNDROME [None]
  - HEADACHE [None]
  - HEART RATE INCREASED [None]
  - MUSCLE TIGHTNESS [None]
  - NAUSEA [None]
  - RESTLESSNESS [None]
